FAERS Safety Report 19898736 (Version 1)
Quarter: 2021Q3

REPORT INFORMATION
  Report Type: Spontaneous
  Country: US (occurrence: US)
  Receive Date: 20210930
  Receipt Date: 20210930
  Transmission Date: 20211014
  Serious: No
  Sender: FDA-Public Use
  Company Number: US-STRONGBRIDGE BIOPHARMA-2021-STR-000318

PATIENT
  Age: 44 Year
  Sex: Female

DRUGS (1)
  1. KEVEYIS [Suspect]
     Active Substance: DICHLORPHENAMIDE
     Indication: FAMILIAL PERIODIC PARALYSIS
     Dosage: 50 MG, QD
     Route: 048
     Dates: start: 20210315

REACTIONS (3)
  - Incorrect dose administered [Recovered/Resolved]
  - Muscle spasms [Recovered/Resolved]
  - Product dose omission issue [Recovered/Resolved]

NARRATIVE: CASE EVENT DATE: 20210917
